FAERS Safety Report 11445854 (Version 1)
Quarter: 2015Q3

REPORT INFORMATION
  Report Type: Spontaneous
  Country: US (occurrence: US)
  Receive Date: 20150831
  Receipt Date: 20150831
  Transmission Date: 20151125
  Serious: No
  Sender: FDA-Public Use
  Company Number: US-ELI_LILLY_AND_COMPANY-US200808000486

PATIENT
  Age: 75 Year
  Sex: Female

DRUGS (5)
  1. CYMBALTA [Suspect]
     Active Substance: DULOXETINE HYDROCHLORIDE
     Indication: FIBROMYALGIA
     Dosage: 30 MG, DAILY (1/D)
     Dates: start: 200806, end: 20080803
  2. CYMBALTA [Suspect]
     Active Substance: DULOXETINE HYDROCHLORIDE
     Dosage: 10 MG, DAILY (1/D)
     Dates: start: 200808
  3. DIPENTUM [Concomitant]
     Active Substance: OLSALAZINE SODIUM
     Indication: COLITIS ULCERATIVE
     Dosage: 1 D/F, UNK
  4. CYMBALTA [Suspect]
     Active Substance: DULOXETINE HYDROCHLORIDE
     Dosage: 20 MG, DAILY (1/D)
     Dates: start: 20080804, end: 200808
  5. NEURONTIN [Concomitant]
     Active Substance: GABAPENTIN
     Dosage: 1 D/F, UNK

REACTIONS (5)
  - Paraesthesia [Recovered/Resolved]
  - Skin odour abnormal [Recovered/Resolved]
  - Insomnia [Recovered/Resolved]
  - Dysgeusia [Not Recovered/Not Resolved]
  - Drug ineffective [Recovered/Resolved]

NARRATIVE: CASE EVENT DATE: 200806
